FAERS Safety Report 13576695 (Version 3)
Quarter: 2017Q4

REPORT INFORMATION
  Report Type: Report from Study
  Country: JP (occurrence: JP)
  Receive Date: 20170524
  Receipt Date: 20171020
  Transmission Date: 20180320
  Serious: Yes (Life-Threatening, Other)
  Sender: FDA-Public Use
  Company Number: JP-GLAXOSMITHKLINE-A200701041

PATIENT
  Age: 41 Year
  Sex: Male

DRUGS (40)
  1. LEXIVA [Suspect]
     Active Substance: FOSAMPRENAVIR CALCIUM
     Indication: HIV INFECTION
     Dosage: 700 MG, BID
     Route: 048
     Dates: start: 20080920
  2. VIDEX [Suspect]
     Active Substance: DIDANOSINE
     Dosage: 150 MG, BID
     Route: 048
     Dates: start: 19970307, end: 19991031
  3. CRIXIVAN [Suspect]
     Active Substance: INDINAVIR SULFATE
     Indication: HIV INFECTION
     Dosage: 800 MG, 1D
     Route: 048
     Dates: start: 20000318, end: 20000524
  4. OLMETEC [Concomitant]
     Active Substance: OLMESARTAN MEDOXOMIL
     Indication: HYPERTENSION
     Dosage: 20 MG, QD
     Route: 048
     Dates: start: 20081031, end: 20160422
  5. TENORMIN [Concomitant]
     Active Substance: ATENOLOL
     Dosage: 25 MG, BID
     Route: 048
     Dates: start: 20091215
  6. NORVIR [Suspect]
     Active Substance: RITONAVIR
     Dosage: 100 MG, 1D
     Route: 048
     Dates: start: 20040425, end: 20080919
  7. NORVIR [Suspect]
     Active Substance: RITONAVIR
     Dosage: 200 MG, 1D
     Route: 048
     Dates: start: 20080920, end: 20110617
  8. ZERIT [Suspect]
     Active Substance: STAVUDINE
     Dosage: 30 MG, BID
     Route: 048
     Dates: start: 19980803, end: 19981109
  9. ISENTRESS [Suspect]
     Active Substance: RALTEGRAVIR POTASSIUM
     Indication: HIV INFECTION
     Dosage: 800 MG, 1D
     Route: 048
     Dates: start: 20080920
  10. INVIRASE [Suspect]
     Active Substance: SAQUINAVIR MESYLATE
     Indication: HIV INFECTION
     Dosage: 400 MG, BID
     Route: 048
     Dates: start: 19990619, end: 19991031
  11. NORVASC [Concomitant]
     Active Substance: AMLODIPINE BESYLATE
     Indication: HYPERTENSION
     Route: 048
     Dates: start: 20081031, end: 20090105
  12. LAMIVUDINE. [Suspect]
     Active Substance: LAMIVUDINE
     Indication: HIV INFECTION
     Route: 048
     Dates: start: 20040515, end: 20080919
  13. VIDEX [Suspect]
     Active Substance: DIDANOSINE
     Dosage: 300 MG, 1D
     Route: 048
     Dates: start: 19991101, end: 20010721
  14. VIREAD [Concomitant]
     Active Substance: TENOFOVIR DISOPROXIL FUMARATE
     Indication: HIV INFECTION
     Dosage: 300 MG, 1D
     Route: 048
     Dates: start: 20040425, end: 20080919
  15. ZIAGEN [Concomitant]
     Active Substance: ABACAVIR SULFATE
     Indication: HIV INFECTION
     Dosage: 600 MG, 1D
     Route: 048
     Dates: start: 20000724, end: 20000725
  16. ADALAT CC [Concomitant]
     Active Substance: NIFEDIPINE
     Indication: HYPERTENSION
     Dosage: 20 MG, QD
     Dates: start: 20160401, end: 20160422
  17. ADALAT CC [Concomitant]
     Active Substance: NIFEDIPINE
     Dosage: 10 MG, QD
     Dates: start: 20160423
  18. ZERIT [Suspect]
     Active Substance: STAVUDINE
     Dosage: 40 MG, BID
     Route: 048
     Dates: start: 19980227, end: 19980803
  19. NORVIR [Suspect]
     Active Substance: RITONAVIR
     Indication: HIV INFECTION
     Dosage: 400 MG, BID
     Dates: start: 19990619
  20. CROSS EIGHT M [Concomitant]
     Active Substance: ANTIHEMOPHILIC FACTOR HUMAN
     Route: 042
     Dates: start: 20050401
  21. TRUVADA [Concomitant]
     Active Substance: EMTRICITABINE\TENOFOVIR DISOPROXIL FUMARATE
     Indication: HIV INFECTION
     Dosage: 1 DF, 1D
     Route: 048
     Dates: start: 20080920, end: 20170317
  22. TENORMIN [Concomitant]
     Active Substance: ATENOLOL
     Indication: HYPERTENSION
     Dosage: 25 MG, QD
     Route: 048
     Dates: start: 20090623, end: 20091214
  23. NORVIR [Suspect]
     Active Substance: RITONAVIR
     Indication: HIV INFECTION
     Dosage: 800 MG, 1D
     Route: 048
     Dates: start: 19991101, end: 20001224
  24. ZERIT [Suspect]
     Active Substance: STAVUDINE
     Indication: HIV INFECTION
     Dosage: 30 MG, BID
     Route: 048
     Dates: start: 19970825, end: 19980227
  25. ZERIT [Suspect]
     Active Substance: STAVUDINE
     Dosage: 80 MG, 1D
     Route: 048
     Dates: start: 20001225, end: 20011020
  26. LUPRAC [Concomitant]
     Active Substance: TORSEMIDE
     Indication: HYPERTENSION
     Dosage: 8 MG, QD
     Dates: start: 20160423
  27. FLUITRAN [Concomitant]
     Active Substance: TRICHLORMETHIAZIDE
     Indication: HYPERTENSION
     Dosage: 2 MG, QOD
     Dates: start: 20170318
  28. VIDEX [Suspect]
     Active Substance: DIDANOSINE
     Indication: HIV INFECTION
     Dosage: 125 MG, BID
     Route: 048
     Dates: start: 19941219, end: 19970307
  29. REYATAZ [Concomitant]
     Active Substance: ATAZANAVIR SULFATE
     Indication: HIV INFECTION
     Dosage: 300 MG, 1D
     Route: 048
     Dates: start: 20040425, end: 20080919
  30. ZERIT [Suspect]
     Active Substance: STAVUDINE
     Dosage: 40 MG, BID
     Route: 048
     Dates: start: 19981109, end: 19990619
  31. NORVIR [Suspect]
     Active Substance: RITONAVIR
     Dosage: 200 MG, 1D
     Route: 048
     Dates: start: 20110618
  32. STOCRIN [Suspect]
     Active Substance: EFAVIRENZ
     Indication: HIV INFECTION
     Dosage: 600 MG, 1D
     Route: 048
     Dates: start: 20000724, end: 20000725
  33. STOCRIN [Suspect]
     Active Substance: EFAVIRENZ
     Dosage: 600 MG, 1D
     Route: 048
     Dates: start: 20000925, end: 20001002
  34. INVIRASE [Suspect]
     Active Substance: SAQUINAVIR MESYLATE
     Dosage: 800 MG, 1D
     Route: 048
     Dates: start: 19991101, end: 20000318
  35. ZIAGEN [Concomitant]
     Active Substance: ABACAVIR SULFATE
     Dosage: 600 MG, 1D
     Route: 048
     Dates: start: 20011020, end: 20011027
  36. KOGENATE-FS [Concomitant]
     Indication: HAEMARTHROSIS
     Dosage: 1 KIU, UNK
     Dates: start: 20160401
  37. KALETRA [Suspect]
     Active Substance: LOPINAVIR\RITONAVIR
     Indication: HIV INFECTION
     Dosage: 6 DF, 1D
     Route: 048
     Dates: start: 20001225, end: 20040424
  38. VIDEX EC [Suspect]
     Active Substance: DIDANOSINE
     Indication: HIV INFECTION
     Dosage: 400 MG, 1D
     Route: 048
     Dates: start: 20010721, end: 20040514
  39. INVIRASE [Suspect]
     Active Substance: SAQUINAVIR MESYLATE
     Dosage: 800 MG, 1D
     Route: 048
     Dates: start: 20000524, end: 20001224
  40. CROSS EIGHT M [Concomitant]
     Active Substance: ANTIHEMOPHILIC FACTOR HUMAN
     Indication: HAEMARTHROSIS
     Dosage: 1 KIU, UNK
     Route: 042
     Dates: start: 19991101

REACTIONS (2)
  - Pulmonary hypertension [Not Recovered/Not Resolved]
  - Pulmonary hypertension [Not Recovered/Not Resolved]

NARRATIVE: CASE EVENT DATE: 20170318
